FAERS Safety Report 5712907-3 (Version None)
Quarter: 2008Q2

REPORT INFORMATION
  Report Type: 
  Country: None (occurrence: None)
  Receive Date: 20080421
  Receipt Date: 20080421
  Transmission Date: 20081010
  Serious: Yes (Hospitalization)
  Sender: FDA-Public Use
  Company Number: None

PATIENT
  Sex: Female
  Weight: 71.4 kg

DRUGS (3)
  1. CISPLATIN [Suspect]
     Dosage: 181 MG
     Dates: end: 20080331
  2. ATIVAN [Concomitant]
  3. OXYCODONE HCL [Concomitant]

REACTIONS (5)
  - ANOREXIA [None]
  - ASPIRATION [None]
  - DEHYDRATION [None]
  - DYSPHAGIA [None]
  - PRODUCTIVE COUGH [None]
